FAERS Safety Report 10749298 (Version 1)
Quarter: 2015Q1

REPORT INFORMATION
  Report Type: Spontaneous
  Country: FR (occurrence: FR)
  Receive Date: 20150129
  Receipt Date: 20150129
  Transmission Date: 20150721
  Serious: Yes (Life-Threatening, Hospitalization)
  Sender: FDA-Public Use
  Company Number: FR-ASTRAZENECA-2015SE08748

PATIENT
  Age: 12131 Day
  Sex: Female
  Weight: 120 kg

DRUGS (9)
  1. LYSANXIA [Suspect]
     Active Substance: PRAZEPAM
     Dosage: ONCE/SINGLE ADMINISTRATION
     Route: 048
     Dates: start: 20140519, end: 20140519
  2. LYSANXIA [Suspect]
     Active Substance: PRAZEPAM
     Dosage: USUAL TREATMENTS
     Route: 048
  3. DIPIPERON [Suspect]
     Active Substance: PIPAMPERONE
     Dosage: ONCE/SINGLE ADMINISTRATION
     Route: 065
     Dates: start: 20140519, end: 20140519
  4. CYMBALTA [Suspect]
     Active Substance: DULOXETINE HYDROCHLORIDE
     Dosage: USUAL TREATMENTS
     Route: 065
  5. CYMBALTA [Suspect]
     Active Substance: DULOXETINE HYDROCHLORIDE
     Dosage: ONCE/SINGLE ADMINISTRATION
     Route: 065
     Dates: start: 20140519, end: 20140519
  6. NOCTAMIDE [Suspect]
     Active Substance: LORMETAZEPAM
     Dosage: ONCE/SINGLE ADMINISTRATION
     Route: 065
     Dates: start: 20140519, end: 20140519
  7. CYMBALTA [Suspect]
     Active Substance: DULOXETINE HYDROCHLORIDE
     Dosage: USUAL TREATMENTS
     Route: 065
  8. XEROQUEL [Suspect]
     Active Substance: QUETIAPINE FUMARATE
     Dosage: ONCE/SINGLE ADMINISTRATION
     Route: 048
     Dates: start: 20140519, end: 20140519
  9. BROMAZEPAM [Suspect]
     Active Substance: BROMAZEPAM
     Dosage: ONCE/SINGLE ADMINISTRATION
     Route: 065
     Dates: start: 20140519, end: 20140519

REACTIONS (6)
  - Suicide attempt [Unknown]
  - Pneumonia aspiration [Recovered/Resolved]
  - Toxicity to various agents [Recovered/Resolved]
  - Respiratory distress [Recovered/Resolved]
  - Diarrhoea [Recovered/Resolved]
  - Coma [Recovered/Resolved]

NARRATIVE: CASE EVENT DATE: 20140519
